FAERS Safety Report 13821614 (Version 2)
Quarter: 2017Q3

REPORT INFORMATION
  Report Type: Spontaneous
  Country: US (occurrence: US)
  Receive Date: 20170801
  Receipt Date: 20170814
  Transmission Date: 20171127
  Serious: No
  Sender: FDA-Public Use
  Company Number: US-009507513-1707USA013234

PATIENT

DRUGS (1)
  1. PREGNYL [Suspect]
     Active Substance: CHORIOGONADOTROPIN ALFA
     Indication: HEPATITIS C
     Dosage: UNK
     Route: 048
     Dates: start: 201706

REACTIONS (3)
  - Injection site pruritus [Unknown]
  - Injection site bruising [Unknown]
  - Injection site swelling [Unknown]
